FAERS Safety Report 18944384 (Version 2)
Quarter: 2021Q1

REPORT INFORMATION
  Report Type: Spontaneous
  Country: CZ (occurrence: CZ)
  Receive Date: 20210226
  Receipt Date: 20210310
  Transmission Date: 20210420
  Serious: Yes (Other)
  Sender: FDA-Public Use
  Company Number: CZ-ROCHE-2777948

PATIENT
  Sex: Female

DRUGS (5)
  1. MAGNOSOLV [Concomitant]
     Active Substance: MAGNESIUM CARBONATE\MAGNESIUM OXIDE
  2. NIDRAZID [Concomitant]
     Active Substance: ISONIAZID
     Indication: TUBERCULOSIS
     Dates: start: 20190215
  3. OCREVUS [Suspect]
     Active Substance: OCRELIZUMAB
     Indication: RELAPSING-REMITTING MULTIPLE SCLEROSIS
     Dosage: MOST RECENT DOSE 03/DEC/2020?INITIAL 300 MG ONCE IN 2 WEEKS THEN 600 MG ONCE IN 6 MONTHS
     Route: 042
     Dates: start: 20190522
  4. VIGANTOL [Concomitant]
  5. PYRIDOXIN [Concomitant]
     Active Substance: PYRIDOXINE
     Indication: TUBERCULOSIS
     Dosage: 1?0?0
     Dates: start: 20190215

REACTIONS (1)
  - Breast cancer [Unknown]
